FAERS Safety Report 23339097 (Version 1)
Quarter: 2023Q4

REPORT INFORMATION
  Report Type: Report from Study
  Country: US (occurrence: US)
  Receive Date: 20231226
  Receipt Date: 20231226
  Transmission Date: 20240110
  Serious: Yes (Other)
  Sender: FDA-Public Use
  Company Number: US-ABBVIE-5554778

PATIENT
  Sex: Male

DRUGS (1)
  1. HUMIRA [Suspect]
     Active Substance: ADALIMUMAB
     Indication: Psoriasis
     Dosage: STOP DATE TEXT: UNKNOWN, FREQUENCY TEXT: UNKNOWN
     Route: 058
     Dates: start: 20170303

REACTIONS (1)
  - Arterial occlusive disease [Not Recovered/Not Resolved]
